FAERS Safety Report 22666874 (Version 2)
Quarter: 2023Q4

REPORT INFORMATION
  Report Type: Spontaneous
  Country: JP (occurrence: JP)
  Receive Date: 20230704
  Receipt Date: 20231224
  Transmission Date: 20240110
  Serious: Yes (Hospitalization, Other)
  Sender: FDA-Public Use
  Company Number: JP-SA-2023SA195201

PATIENT
  Age: 67 Year
  Sex: Male

DRUGS (1)
  1. PLAVIX [Suspect]
     Active Substance: CLOPIDOGREL BISULFATE
     Indication: Coronary artery stenosis
     Route: 048

REACTIONS (2)
  - Thrombotic microangiopathy [Recovering/Resolving]
  - Anaemia [Recovering/Resolving]
